FAERS Safety Report 8979267 (Version 2)
Quarter: 2013Q2

REPORT INFORMATION
  Report Type: Spontaneous
  Country: GB (occurrence: GB)
  Receive Date: 20121221
  Receipt Date: 20130529
  Transmission Date: 20140414
  Serious: Yes (Hospitalization)
  Sender: FDA-Public Use
  Company Number: GB-NOVOPROD-366470

PATIENT
  Age: 18 Year
  Sex: Male

DRUGS (6)
  1. NOVORAPID [Suspect]
     Indication: TYPE 1 DIABETES MELLITUS
     Dosage: 4 U, TID
     Route: 058
  2. NOVORAPID [Suspect]
     Dosage: 600 U, QD
     Route: 058
  3. LANTUS [Suspect]
     Indication: TYPE 1 DIABETES MELLITUS
     Dosage: 20 U, QD
     Route: 058
  4. LANTUS [Suspect]
     Dosage: 1200 U, QD
     Route: 058
  5. LANSOPRAZOLE [Concomitant]
  6. TRAMADOL [Concomitant]

REACTIONS (3)
  - Suicide attempt [Recovered/Resolved]
  - Intentional overdose [Recovered/Resolved]
  - Hypoglycaemia [Recovered/Resolved]
